FAERS Safety Report 9581343 (Version 2)
Quarter: 2014Q3

REPORT INFORMATION
  Report Type: Spontaneous
  Country: US (occurrence: US)
  Receive Date: 20131002
  Receipt Date: 20140717
  Transmission Date: 20150326
  Serious: Yes (Hospitalization, Other)
  Sender: FDA-Public Use
  Company Number: US-GLAXOSMITHKLINE-A1043613A

PATIENT
  Age: 48 Year
  Sex: Male

DRUGS (5)
  1. LAMICTAL [Suspect]
     Active Substance: LAMOTRIGINE
     Indication: CONVULSION
     Dosage: 200MG TWICE PER DAY
     Route: 048
     Dates: start: 20140707
  2. COUMADIN [Concomitant]
     Active Substance: WARFARIN SODIUM
  3. VIMPAT [Concomitant]
     Active Substance: LACOSAMIDE
  4. LAMICTAL XR [Suspect]
     Active Substance: LAMOTRIGINE
     Indication: CONVULSION
     Dosage: 200MG UNKNOWN
     Route: 065
     Dates: start: 20120308
  5. VIMPAT [Suspect]
     Active Substance: LACOSAMIDE
     Indication: PRODUCT USED FOR UNKNOWN INDICATION
     Dosage: 150MG TWICE PER DAY
     Route: 065
     Dates: start: 2013

REACTIONS (5)
  - Somnolence [Recovering/Resolving]
  - Vision blurred [Not Recovered/Not Resolved]
  - Overdose [Unknown]
  - Convulsion [Unknown]
  - Drug dispensing error [Unknown]

NARRATIVE: CASE EVENT DATE: 2013
